FAERS Safety Report 13045628 (Version 5)
Quarter: 2017Q4

REPORT INFORMATION
  Report Type: Spontaneous
  Country: US (occurrence: US)
  Receive Date: 20161220
  Receipt Date: 20171017
  Transmission Date: 20180320
  Serious: Yes (Hospitalization, Other)
  Sender: FDA-Public Use
  Company Number: US-AMGEN-USASP2016177213

PATIENT
  Age: 68 Year
  Sex: Male

DRUGS (26)
  1. IDARUBICIN [Suspect]
     Active Substance: IDARUBICIN
     Indication: ACUTE MYELOID LEUKAEMIA RECURRENT
     Dosage: 5 MG/M2, QD FOR 3 DAYS (DAYS 2-4)
     Route: 042
     Dates: start: 20161111, end: 20161113
  2. POTASSIUM CHLORIDE. [Concomitant]
     Active Substance: POTASSIUM CHLORIDE
     Dosage: UNK
     Dates: start: 20161111, end: 20161113
  3. FILGRASTIM [Concomitant]
     Active Substance: FILGRASTIM
     Dosage: 516 MUG, UNK
     Dates: start: 20161110, end: 20161114
  4. DEXAMETHASONE. [Concomitant]
     Active Substance: DEXAMETHASONE
     Dosage: UNK
     Dates: start: 20161111, end: 20161111
  5. MAGNESIUM SULPHATE [Concomitant]
     Active Substance: MAGNESIUM SULFATE
     Dosage: 6 G, UNK
     Dates: start: 20161111, end: 20161111
  6. PANTOPRAZOLE [Concomitant]
     Active Substance: PANTOPRAZOLE
     Dosage: 40 MG, UNK
     Dates: start: 20161110, end: 20161130
  7. PHYTONADIONE. [Concomitant]
     Active Substance: PHYTONADIONE
     Dosage: 10 MG, UNK
     Dates: start: 20161110, end: 20161130
  8. SEVELAMER [Concomitant]
     Active Substance: SEVELAMER
     Dosage: 1600 MG, UNK
     Dates: start: 20161112, end: 20161119
  9. NEUPOGEN [Suspect]
     Active Substance: FILGRASTIM
     Indication: NEUTROPENIA
     Dosage: 300 MUG, QD
     Route: 058
     Dates: start: 20161122, end: 20161129
  10. FLUDARABINE [Suspect]
     Active Substance: FLUDARABINE PHOSPHATE
     Indication: ACUTE MYELOID LEUKAEMIA
     Dosage: 15 MG/M2, QD FOR 5 DAYS (DAYS 2-6)
     Route: 042
     Dates: start: 20161111, end: 20161115
  11. FUROSEMIDE. [Concomitant]
     Active Substance: FUROSEMIDE
     Dosage: 10 MG/ML, UNK
     Dates: start: 20161112, end: 20161113
  12. ONDANSETRON [Concomitant]
     Active Substance: ONDANSETRON
     Dosage: UNK
     Dates: start: 20161111, end: 20161118
  13. TOBRAMYCIN. [Concomitant]
     Active Substance: TOBRAMYCIN
     Dosage: UNK
     Dates: start: 20161110, end: 20161110
  14. CYTARABINE. [Suspect]
     Active Substance: CYTARABINE
     Indication: ACUTE MYELOID LEUKAEMIA
     Dosage: 1000 MG/M2, QD FOR 5 DAYS (DAYS 2-6)
     Route: 042
     Dates: start: 20161111, end: 20161115
  15. DOCUSATE [Concomitant]
     Active Substance: DOCUSATE
     Dosage: 100 MG, UNK
     Dates: start: 20161109, end: 20161130
  16. ATORVASTATIN [Concomitant]
     Active Substance: ATORVASTATIN
     Dosage: 10 MG, UNK
     Dates: start: 20161110, end: 20161110
  17. HYDROMORPHONE [Concomitant]
     Active Substance: HYDROMORPHONE
     Dosage: 1 MG/ML, UNK
     Dates: start: 20161109, end: 20161109
  18. MAGNESIUM CITRATE. [Concomitant]
     Active Substance: MAGNESIUM CITRATE
     Dosage: 300 ML, UNK
     Dates: start: 20161112, end: 20161112
  19. SODIUM CHLORIDE. [Concomitant]
     Active Substance: SODIUM CHLORIDE
     Dosage: UNK
     Dates: start: 20161109, end: 20161112
  20. VANCOMYCIN [Concomitant]
     Active Substance: VANCOMYCIN
     Dosage: 1 G, UNK
     Dates: start: 20161112, end: 20161113
  21. NEUPOGEN [Suspect]
     Active Substance: FILGRASTIM
     Indication: ACUTE MYELOID LEUKAEMIA
     Dosage: 516 MUG, QD
     Route: 058
     Dates: start: 20161110, end: 20161114
  22. ATROPINE. [Concomitant]
     Active Substance: ATROPINE
     Dosage: UNK
     Dates: start: 20161110, end: 20161130
  23. MEROPENEM. [Concomitant]
     Active Substance: MEROPENEM
     Dosage: 1 G, UNK
     Dates: start: 20161110, end: 20161114
  24. POLYETHYLENE GLYCOL [Concomitant]
     Active Substance: POLYETHYLENE GLYCOLS
     Dosage: 17 G, UNK
     Dates: start: 20161111, end: 20161130
  25. PREDNISOLONE ACETATE. [Concomitant]
     Active Substance: PREDNISOLONE ACETATE
     Dosage: UNK
     Dates: start: 20161111, end: 20161118
  26. SENNA [Concomitant]
     Active Substance: SENNA LEAF\SENNOSIDES\SENNOSIDES A AND B
     Dosage: UNK
     Dates: start: 20161112, end: 20161130

REACTIONS (1)
  - Tumour lysis syndrome [Recovered/Resolved]

NARRATIVE: CASE EVENT DATE: 20161112
